FAERS Safety Report 8600941-5 (Version None)
Quarter: 2012Q3

REPORT INFORMATION
  Report Type: 
  Country: None (occurrence: None)
  Receive Date: 20120805
  Receipt Date: 20120726
  Transmission Date: 20120928
  Serious: Yes (Other)
  Sender: FDA-Public Use
  Company Number: 1365027

PATIENT
  Age: 55 Year
  Sex: Female

DRUGS (4)
  1. PACLITAXEL [Suspect]
     Dosage: 260 MILLIGRM (S), INTRAVENOUS
     Route: 042
     Dates: start: 20120627, end: 20120627
  2. RANITIDINE [Concomitant]
  3. DIPHENHYDRAMINE HYDROCHLORIDE [Concomitant]
  4. DEXAMETHASONE SODIUM PHOSPHATE [Concomitant]

REACTIONS (4)
  - CONDITION AGGRAVATED [None]
  - CHEST DISCOMFORT [None]
  - DYSPNOEA [None]
  - LUNG DISORDER [None]
